FAERS Safety Report 6649789-1 (Version None)
Quarter: 2010Q1

REPORT INFORMATION
  Report Type: 
  Country: None (occurrence: None)
  Receive Date: 20100322
  Receipt Date: 20100308
  Transmission Date: 20100710
  Serious: Yes (Hospitalization)
  Sender: FDA-Public Use
  Company Number: 232445J10USA

PATIENT
  Age: 53 Year
  Sex: Female

DRUGS (7)
  1. REBIF [Suspect]
     Indication: MULTIPLE SCLEROSIS
     Dosage: 44 MCG, 3 IN 1 WEEKS, SUBCUTANEOUS
     Route: 058
     Dates: start: 20090427
  2. MULTIVITAMIN (MULTIVITAMIN / 01229101/) [Concomitant]
  3. ALEVE [Concomitant]
  4. BACLOFEN [Concomitant]
  5. DILANTIN [Concomitant]
  6. METOPROLOL (METOPROLOL) [Concomitant]
  7. STEROIDS (CORTICOSTEROIDS) [Concomitant]

REACTIONS (1)
  - URINARY TRACT INFECTION [None]
